FAERS Safety Report 5978660-3 (Version None)
Quarter: 2008Q4

REPORT INFORMATION
  Report Type: 
  Country: None (occurrence: None)
  Receive Date: 20081204
  Receipt Date: 20081125
  Transmission Date: 20090506
  Serious: Yes (Hospitalization)
  Sender: FDA-Public Use
  Company Number: US-PURDUE-USA_2008_0035174

PATIENT
  Age: 78 Year
  Sex: Male

DRUGS (20)
  1. ZESTRIL [Concomitant]
     Indication: BLOOD PRESSURE
     Dosage: 40 MG, UNK
  2. ASPIRIN [Concomitant]
     Indication: CEREBROVASCULAR ACCIDENT PROPHYLAXIS
     Dosage: 325 MG, DAILY
  3. CRESTOR [Concomitant]
     Indication: BLOOD CHOLESTEROL
     Dosage: 5 MG, UNK
  4. ESGIC [Concomitant]
     Indication: HEADACHE
     Dosage: UNK, PRN
  5. MECLIZINE                          /00072801/ [Concomitant]
     Indication: VERTIGO
     Dosage: 25 MG, UNK
  6. TYLENOL (CAPLET) [Concomitant]
     Indication: PAIN
     Dosage: 500 MG, PRN
  7. IBUPROFEN TABLETS [Concomitant]
     Indication: ARTHRITIS
     Dosage: 200 MG, UNK
  8. MULTI-VITAMINS [Concomitant]
     Indication: NUTRITIONAL SUPPORT
     Dosage: UNK, BID
  9. ESTER-C                            /00968001/ [Concomitant]
     Indication: NUTRITIONAL SUPPORT
     Dosage: 500 MG, BID
  10. VITAMIN E                          /00110501/ [Concomitant]
     Dosage: 400 IU, DAILY
  11. CALCIUM MAGNESIUM                  /01412301/ [Concomitant]
     Indication: NUTRITIONAL SUPPORT
     Dosage: 187 MG, QID
  12. COENZYME Q10 [Concomitant]
     Indication: NUTRITIONAL SUPPORT
     Dosage: 50 MG, DAILY
  13. B-COMPLEX                          /00302401/ [Concomitant]
     Indication: NUTRITIONAL SUPPORT
  14. ZINC [Concomitant]
     Indication: TINNITUS
     Dosage: 50 MG, TID
  15. NIACIN [Concomitant]
     Indication: BLOOD CHOLESTEROL
     Dosage: 500 MG, TID
  16. SENOKOT [Suspect]
     Indication: CONSTIPATION
     Dosage: 1 TABLET, NOCTE
     Dates: start: 20080926, end: 20080926
  17. AGGRENOX [Concomitant]
     Indication: PROPHYLAXIS
     Dosage: 1 TABLET, BID
  18. SALSALATE [Concomitant]
     Indication: ARTHRITIS
     Dosage: 1500 MG, BID
  19. BUPROPION HCL ER [Concomitant]
     Indication: MOOD SWINGS
     Dosage: 150 MG, BID
  20. NITROGLYCERIN [Concomitant]
     Indication: CHEST PAIN
     Dosage: UNK, PRN

REACTIONS (4)
  - CHEST PAIN [None]
  - DRUG INEFFECTIVE [None]
  - HYPOAESTHESIA [None]
  - PAIN [None]
